FAERS Safety Report 14492167 (Version 1)
Quarter: 2018Q1

REPORT INFORMATION
  Report Type: Spontaneous
  Country: DE (occurrence: DE)
  Receive Date: 20180206
  Receipt Date: 20180206
  Transmission Date: 20180509
  Serious: Yes (Life-Threatening, Hospitalization, Other)
  Sender: FDA-Public Use
  Company Number: DE-PURACAP PHARMACEUTICAL LLC-2018EPC00039

PATIENT
  Age: 48 Year
  Sex: Male

DRUGS (3)
  1. IBUPROFEN. [Suspect]
     Active Substance: IBUPROFEN
     Indication: PAIN
     Dosage: 800 MG, 3X/DAY
     Route: 065
  2. INHALATIVE BETA-SYMPATHOMIMETIC [Concomitant]
     Route: 065
  3. IBUPROFEN. [Suspect]
     Active Substance: IBUPROFEN
     Dosage: 72 G, ONCE
     Route: 048

REACTIONS (5)
  - Suicide attempt [Recovered/Resolved]
  - Circulatory collapse [Recovering/Resolving]
  - Metabolic acidosis [Unknown]
  - Intentional overdose [Recovered/Resolved]
  - Acute kidney injury [Unknown]
